FAERS Safety Report 7712537-8 (Version None)
Quarter: 2011Q3

REPORT INFORMATION
  Report Type: 
  Country: None (occurrence: None)
  Receive Date: 20110826
  Receipt Date: 20110825
  Transmission Date: 20111222
  Serious: Yes (Death, Hospitalization)
  Sender: FDA-Public Use
  Company Number: JP-ABBOTT-11P-087-0849266-00

PATIENT
  Sex: Female

DRUGS (3)
  1. HUMIRA [Suspect]
     Indication: RHEUMATOID ARTHRITIS
     Route: 058
     Dates: start: 20100707, end: 20110526
  2. SODIUM RISEDRONATE HYDRATE [Concomitant]
     Indication: OSTEOPOROSIS
     Route: 048
     Dates: start: 20100101
  3. METHOTREXATE [Suspect]
     Indication: RHEUMATOID ARTHRITIS
     Dosage: 4 MG/WEEK
     Route: 048
     Dates: start: 20100106, end: 20110611

REACTIONS (2)
  - WHITE BLOOD CELL COUNT INCREASED [None]
  - INTERSTITIAL LUNG DISEASE [None]
